FAERS Safety Report 21947737 (Version 6)
Quarter: 2023Q1

REPORT INFORMATION
  Report Type: Spontaneous
  Country: US (occurrence: US)
  Receive Date: 20230203
  Receipt Date: 20230331
  Transmission Date: 20230417
  Serious: Yes (Other)
  Sender: FDA-Public Use
  Company Number: US-TOLMAR, INC.-23US038676

PATIENT
  Sex: Male

DRUGS (1)
  1. ELIGARD [Suspect]
     Active Substance: LEUPROLIDE ACETATE
     Indication: Neoplasm malignant
     Dosage: 45 MILLIGRAM

REACTIONS (4)
  - Blood testosterone abnormal [Unknown]
  - Inappropriate schedule of product administration [Unknown]
  - Product temperature excursion issue [Unknown]
  - Drug ineffective [Unknown]
